FAERS Safety Report 7477162-5 (Version None)
Quarter: 2011Q2

REPORT INFORMATION
  Report Type: 
  Country: None (occurrence: None)
  Receive Date: 20110512
  Receipt Date: 20110428
  Transmission Date: 20111010
  Serious: Yes (Hospitalization, Other)
  Sender: FDA-Public Use
  Company Number: ES-ELI_LILLY_AND_COMPANY-ES201104007951

PATIENT
  Sex: Female
  Weight: 67 kg

DRUGS (7)
  1. LEXATIN [Concomitant]
     Indication: RELAXATION THERAPY
     Dosage: 1.5 MG, QD
     Route: 048
     Dates: start: 20070401
  2. ASPIRIN [Concomitant]
     Indication: ARRHYTHMIA
     Dosage: UNK, QD
     Route: 048
     Dates: start: 20081001
  3. DAFLON [Concomitant]
     Indication: VARICOSE VEIN
     Dosage: UNK, QD
     Route: 048
     Dates: start: 20070401
  4. PARAPRES [Concomitant]
     Indication: HYPERTENSION
     Dosage: 32 MG, QD
     Route: 048
     Dates: start: 20100401
  5. SUMIAL [Concomitant]
     Dosage: 10 NG, EVERY 8 HRS
     Route: 048
     Dates: start: 20081001
  6. SINVASTATINA [Concomitant]
     Indication: HYPERCHOLESTEROLAEMIA
     Dosage: 10 MG, QD
     Route: 048
     Dates: start: 20110414
  7. FORTEO [Suspect]
     Indication: JOINT PROSTHESIS USER
     Dosage: 20 UG, QD
     Route: 058
     Dates: start: 20090916, end: 20110317

REACTIONS (2)
  - TACHYCARDIA [None]
  - OFF LABEL USE [None]
